FAERS Safety Report 5734755-0 (Version None)
Quarter: 2008Q2

REPORT INFORMATION
  Report Type: 
  Country: None (occurrence: None)
  Receive Date: 20080508
  Receipt Date: 20080508
  Transmission Date: 20081010
  Serious: No
  Sender: FDA-Public Use
  Company Number: None

PATIENT
  Age: 15 Year
  Sex: Male
  Weight: 56.6996 kg

DRUGS (1)
  1. CREST PRO-HEALTH RINSE PROCTOR GAMBLE [Suspect]
     Indication: TOOTH DISCOLOURATION
     Dosage: 2 TEASPOONS ONCE A DAY
     Dates: start: 20061201, end: 20071201

REACTIONS (2)
  - PHARMACEUTICAL PRODUCT COMPLAINT [None]
  - TOOTH DISCOLOURATION [None]
